FAERS Safety Report 14295438 (Version 1)
Quarter: 2017Q4

REPORT INFORMATION
  Report Type: Spontaneous
  Country: US (occurrence: US)
  Receive Date: 20171218
  Receipt Date: 20171218
  Transmission Date: 20180321
  Serious: No
  Sender: FDA-Public Use
  Company Number: US-PFIZER INC-2017536544

PATIENT
  Age: 67 Year
  Sex: Female

DRUGS (7)
  1. VITAMIN D [Concomitant]
     Active Substance: CHOLECALCIFEROL
     Indication: SUPPLEMENTATION THERAPY
     Dosage: 5000 UNITS ONCE A DAY
  2. IBRANCE [Suspect]
     Active Substance: PALBOCICLIB
     Indication: BREAST CANCER METASTATIC
     Dosage: 125 MG, CYCLIC(ONCE A DAY IN THE EVENING TAKES IT FOR 21 DAYS AND OFF FOR 7 DAYS)
     Route: 048
     Dates: start: 20161005
  3. MAGNESIUM [Concomitant]
     Active Substance: MAGNESIUM
     Indication: SUPPLEMENTATION THERAPY
     Dosage: 400MG ONCE A DAY
  4. FASLODEX [Concomitant]
     Active Substance: FULVESTRANT
     Indication: BREAST CANCER
     Dosage: 250MG, ONCE A MONTH IN EACH GLUTE, IT IS LIKE A GEL
     Dates: start: 201610
  5. VITAFUSION FIBER WELL FIT [Suspect]
     Active Substance: VITAMINS
     Indication: CONSTIPATION
     Dosage: GUMMIES, BY MOUTH, DOES NOT KNOW FREQUENCEY BUT WAS TAKING IT QUITE A FEW TIMES A DAY
     Route: 048
     Dates: start: 2016, end: 201712
  6. CITRACAL [Concomitant]
     Active Substance: CALCIUM CITRATE
     Indication: BONE DISORDER
     Dosage: 4 TABLETS IN THE MORNING AND 4 TABLETS IN THE EVENING
  7. XGEVA [Concomitant]
     Active Substance: DENOSUMAB
     Indication: BONE CANCER
     Dosage: DOES NOT REMEMBER DOSE, GETS SHOT EVERY THREE MONTHS

REACTIONS (6)
  - Therapeutic response unexpected [Unknown]
  - Carbohydrate antigen 27.29 increased [Not Recovered/Not Resolved]
  - Oesophageal irritation [Unknown]
  - Constipation [Recovering/Resolving]
  - Throat irritation [Not Recovered/Not Resolved]
  - Anxiety [Unknown]

NARRATIVE: CASE EVENT DATE: 201605
